FAERS Safety Report 8133794-2 (Version None)
Quarter: 2012Q1

REPORT INFORMATION
  Report Type: 
  Country: None (occurrence: None)
  Receive Date: 20120213
  Receipt Date: 20120213
  Transmission Date: 20120608
  Serious: Yes (Life-Threatening, Hospitalization, Disabling, Other)
  Sender: FDA-Public Use
  Company Number: None

PATIENT
  Sex: Female
  Weight: 71.667 kg

DRUGS (1)
  1. SAVELLA [Suspect]
     Indication: FIBROMYALGIA
     Dosage: TITRATION
     Route: 048
     Dates: start: 20111218, end: 20111220

REACTIONS (7)
  - CIRCULATORY COLLAPSE [None]
  - CATHETER SITE DISCHARGE [None]
  - STAPHYLOCOCCAL INFECTION [None]
  - THROMBOSIS [None]
  - ABASIA [None]
  - CARDIO-RESPIRATORY ARREST [None]
  - PULMONARY OEDEMA [None]
